FAERS Safety Report 9536258 (Version 2)
Quarter: 2013Q4

REPORT INFORMATION
  Report Type: Spontaneous
  Country: US (occurrence: US)
  Receive Date: 20130919
  Receipt Date: 20131111
  Transmission Date: 20140711
  Serious: Yes (Other)
  Sender: FDA-Public Use
  Company Number: US-BAYER-2013-113064

PATIENT
  Age: 47 Year
  Sex: Female

DRUGS (4)
  1. YAZ [Suspect]
  2. DIAZEPAM [Concomitant]
     Dosage: 5 MG, UNK
  3. METOCLOPRAMIDE [Concomitant]
     Dosage: 10 MG, UNK
  4. HYDROCODONE W/ACETAMINOPHEN [Concomitant]

REACTIONS (1)
  - Deep vein thrombosis [Recovered/Resolved]
